FAERS Safety Report 25302298 (Version 1)
Quarter: 2025Q2

REPORT INFORMATION
  Report Type: Spontaneous
  Country: US (occurrence: None)
  Receive Date: 20250512
  Receipt Date: 20250512
  Transmission Date: 20250716
  Serious: Yes (Disabling)
  Sender: FDA-CTU
  Company Number: None

PATIENT
  Age: 49 Year
  Sex: Female
  Weight: 55.35 kg

DRUGS (5)
  1. KESIMPTA [Suspect]
     Active Substance: OFATUMUMAB
     Indication: Multiple sclerosis
     Dates: start: 20250313, end: 20250412
  2. ESCITALOPRAM OXALATE [Concomitant]
     Active Substance: ESCITALOPRAM OXALATE
  3. TRAZODONE [Concomitant]
     Active Substance: TRAZODONE HYDROCHLORIDE
  4. NP THYROID [Concomitant]
     Active Substance: LEVOTHYROXINE\LIOTHYRONINE
  5. IRON [Concomitant]
     Active Substance: IRON

REACTIONS (14)
  - Insomnia [None]
  - Fatigue [None]
  - Headache [None]
  - Cognitive disorder [None]
  - Memory impairment [None]
  - Aphasia [None]
  - Bradyphrenia [None]
  - Blood pressure decreased [None]
  - Therapy interrupted [None]
  - Blood pressure fluctuation [None]
  - Dizziness [None]
  - Vertigo [None]
  - Blood iron decreased [None]
  - Hysterectomy [None]

NARRATIVE: CASE EVENT DATE: 20250412
